FAERS Safety Report 9858173 (Version 1)
Quarter: 2014Q1

REPORT INFORMATION
  Report Type: Spontaneous
  Country: DE (occurrence: None)
  Receive Date: 20140129
  Receipt Date: 20140129
  Transmission Date: 20141002
  Serious: Yes (Other)
  Sender: FDA-Public Use
  Company Number: 1401-0184

PATIENT
  Age: 74 Year
  Sex: Male

DRUGS (2)
  1. EYLEA (AFLIBERCEPT) (SOLUTION FOR INJECTION) (AFLIBERCEPT) [Suspect]
     Indication: AGE-RELATED MACULAR DEGENERATION
     Dosage: 1 IN 8 WK
     Dates: start: 201212
  2. BLOOD PRESSURE MEDICATION [Concomitant]

REACTIONS (5)
  - Muscle rupture [None]
  - Loss of consciousness [None]
  - Eye pain [None]
  - Dry eye [None]
  - Hypertension [None]
